FAERS Safety Report 4932926-4 (Version None)
Quarter: 2006Q1

REPORT INFORMATION
  Report Type: 
  Country: None (occurrence: None)
  Receive Date: 20060306
  Receipt Date: 20060228
  Transmission Date: 20060701
  Serious: Yes (Death)
  Sender: FDA-Public Use
  Company Number: ES-AVENTIS-200611790GDDC

PATIENT
  Age: 59 Year
  Sex: Male
  Weight: 57 kg

DRUGS (4)
  1. TAXOTERE [Suspect]
     Indication: NEOPLASM MALIGNANT
     Route: 042
     Dates: start: 20051119, end: 20060206
  2. CISPLATIN [Suspect]
     Indication: NEOPLASM MALIGNANT
     Route: 042
     Dates: start: 20051119, end: 20060206
  3. FLUOROURACIL [Suspect]
     Indication: NEOPLASM MALIGNANT
     Route: 042
     Dates: start: 20051119, end: 20060206
  4. RADIOTHERAPY [Suspect]
     Indication: NEOPLASM MALIGNANT

REACTIONS (1)
  - SUDDEN DEATH [None]
